FAERS Safety Report 6528301-1 (Version None)
Quarter: 2010Q1

REPORT INFORMATION
  Report Type: 
  Country: None (occurrence: None)
  Receive Date: 20100106
  Receipt Date: 20091225
  Transmission Date: 20100710
  Serious: Yes (Other)
  Sender: FDA-Public Use
  Company Number: PHBS2007JP02212

PATIENT
  Sex: Female

DRUGS (5)
  1. ZOMETA [Suspect]
     Indication: METASTASES TO BONE
     Dosage: 4 MG, UNK
     Route: 042
     Dates: start: 20061001, end: 20061201
  2. AREDIA [Suspect]
     Indication: METASTASES TO BONE
     Dosage: 90 MG, UNK
     Route: 042
     Dates: start: 20050101, end: 20060101
  3. ANTI-CANCER DRUG [Concomitant]
  4. VINORELBINE [Concomitant]
  5. TRASTUZUMAB [Concomitant]

REACTIONS (7)
  - ABSCESS [None]
  - BONE DISORDER [None]
  - DEBRIDEMENT [None]
  - OSTEONECROSIS [None]
  - POOR PERSONAL HYGIENE [None]
  - PURULENT DISCHARGE [None]
  - TOOTH LOSS [None]
